FAERS Safety Report 4301377-8 (Version None)
Quarter: 2004Q1

REPORT INFORMATION
  Report Type: 
  Country: None (occurrence: None)
  Receive Date: 20040223
  Receipt Date: 20030908
  Transmission Date: 20041129
  Serious: Yes (Other)
  Sender: FDA-Public Use
  Company Number: US-GLAXOSMITHKLINE-A0425044A

PATIENT
  Age: 64 Year
  Sex: Female
  Weight: 63.6 kg

DRUGS (5)
  1. NAVELBINE [Suspect]
     Indication: NON-SMALL CELL LUNG CANCER
     Dosage: 40MG WEEKLY
     Route: 042
     Dates: start: 20030818, end: 20030908
  2. SODIUM CHLORIDE 0.9% [Concomitant]
     Dosage: 50ML PER DAY
     Route: 042
  3. ANZEMET [Concomitant]
  4. DECADRON [Concomitant]
  5. NEUPOGEN [Concomitant]
     Dosage: 480MG PER DAY
     Route: 058

REACTIONS (1)
  - THROMBOCYTOPENIA [None]
